FAERS Safety Report 19266948 (Version 1)
Quarter: 2021Q2

REPORT INFORMATION
  Report Type: Spontaneous
  Country: NL (occurrence: NL)
  Receive Date: 20210517
  Receipt Date: 20210517
  Transmission Date: 20210717
  Serious: Yes (Life-Threatening, Hospitalization, Other)
  Sender: FDA-Public Use
  Company Number: NL-GLAXOSMITHKLINE-NL2020151604

PATIENT
  Age: 35 Year
  Sex: Male
  Weight: 187 kg

DRUGS (26)
  1. EVEROLIMUS. [Interacting]
     Active Substance: EVEROLIMUS
     Dosage: 6 MG, QD ((3 MILLIGRAM, BID (0.5 DAY))
     Route: 065
     Dates: start: 202003, end: 202003
  2. EVEROLIMUS. [Interacting]
     Active Substance: EVEROLIMUS
     Dosage: 2 MG
     Route: 065
  3. CHLOROQUINE. [Interacting]
     Active Substance: CHLOROQUINE
     Dosage: 300 MG, BID
     Route: 048
     Dates: start: 20200311, end: 202003
  4. PREDNISOLONE. [Interacting]
     Active Substance: PREDNISOLONE
     Indication: IMMUNOSUPPRESSANT DRUG THERAPY
     Dosage: 7.5 MG, QD
     Route: 065
     Dates: start: 2016
  5. EVEROLIMUS. [Interacting]
     Active Substance: EVEROLIMUS
     Indication: RENAL TRANSPLANT
     Dosage: 2 MG, BID (DOSE REDUCED DUE TO EXPECTED INTERACTION WITH LOPINAVIR/RITONAVIR ) (0.5 DAY)
     Route: 065
     Dates: start: 202003, end: 202003
  6. EVEROLIMUS. [Interacting]
     Active Substance: EVEROLIMUS
     Dosage: 4 MG, QD
     Route: 065
     Dates: start: 202003, end: 202003
  7. CHLOROQUINE. [Interacting]
     Active Substance: CHLOROQUINE
     Dosage: 100 MG
     Route: 048
  8. TRAMADOL. [Concomitant]
     Active Substance: TRAMADOL
     Indication: HEADACHE
     Dosage: UNK
     Route: 065
  9. TRAMADOL. [Concomitant]
     Active Substance: TRAMADOL
     Indication: MYALGIA
     Dosage: UNK
     Route: 065
     Dates: start: 202002
  10. ACETAMINOPHEN. [Suspect]
     Active Substance: ACETAMINOPHEN
     Indication: PYREXIA
     Dosage: UNK
     Route: 065
     Dates: start: 202002
  11. EVEROLIMUS. [Interacting]
     Active Substance: EVEROLIMUS
     Indication: IMMUNOSUPPRESSANT DRUG THERAPY
     Dosage: 3 MG, BID(TARGETED TROUGH CONCENTRATIONS BETWEEN 3?8 MICROG/L.) (0.5 DAY)
     Route: 065
     Dates: start: 2016, end: 202003
  12. EVEROLIMUS. [Interacting]
     Active Substance: EVEROLIMUS
     Dosage: 6 MG, QD
     Route: 065
     Dates: start: 2016, end: 202003
  13. CEFUROXIME SODIUM. [Suspect]
     Active Substance: CEFUROXIME SODIUM
     Indication: COVID-19
     Dosage: UNK
     Route: 042
     Dates: start: 202003, end: 202003
  14. KALETRA [Interacting]
     Active Substance: LOPINAVIR\RITONAVIR
     Indication: ANTIVIRAL TREATMENT
     Dosage: 1 DF, BID,  (2 DOSAGE FORM QD,)((UNIT DOSE: 400/100 MG)
     Route: 048
     Dates: start: 202003, end: 202003
  15. KALETRA [Interacting]
     Active Substance: LOPINAVIR\RITONAVIR
     Indication: COVID-19 PNEUMONIA
     Dosage: UNK, QD
     Route: 048
     Dates: start: 202003, end: 202003
  16. EVEROLIMUS. [Interacting]
     Active Substance: EVEROLIMUS
     Dosage: 3 MG, QD
     Route: 065
     Dates: start: 2016, end: 202003
  17. CHLOROQUINE. [Interacting]
     Active Substance: CHLOROQUINE
     Indication: COVID-19 PNEUMONIA
     Dosage: 600 MG UNK (LOADING DOSE)
     Route: 048
     Dates: start: 20200310, end: 202003
  18. TRAMADOL. [Concomitant]
     Active Substance: TRAMADOL
     Indication: PYREXIA
     Dosage: UNK
     Route: 065
     Dates: start: 2020
  19. ACETAMINOPHEN. [Suspect]
     Active Substance: ACETAMINOPHEN
     Dosage: UNK
     Route: 065
     Dates: start: 2020
  20. EVEROLIMUS. [Interacting]
     Active Substance: EVEROLIMUS
     Dosage: 4 MG, QD  (2 MILLIGRAM, BID)
     Route: 065
     Dates: start: 2020
  21. TRAMADOL. [Concomitant]
     Active Substance: TRAMADOL
     Indication: COUGH
     Dosage: UNK
     Route: 065
  22. CEFTRIAXONE. [Suspect]
     Active Substance: CEFTRIAXONE
     Indication: COVID-19
     Dosage: UNK
     Route: 042
     Dates: start: 202003
  23. KALETRA [Interacting]
     Active Substance: LOPINAVIR\RITONAVIR
     Indication: COVID-19
     Dosage: 4 DF, QD (PER DAY 2 PIECES)
     Route: 065
     Dates: start: 20200310, end: 20200314
  24. KALETRA [Interacting]
     Active Substance: LOPINAVIR\RITONAVIR
     Dosage: 1 DF, BID
     Route: 065
     Dates: start: 202003, end: 202003
  25. EVEROLIMUS. [Interacting]
     Active Substance: EVEROLIMUS
     Dosage: 2 MG, QD
     Route: 065
     Dates: start: 202003, end: 202003
  26. TRAMADOL. [Concomitant]
     Active Substance: TRAMADOL
     Indication: MALAISE
     Dosage: UNK
     Route: 065

REACTIONS (37)
  - Condition aggravated [Recovered/Resolved]
  - Cough [Recovering/Resolving]
  - Productive cough [Recovering/Resolving]
  - Diarrhoea [Recovering/Resolving]
  - Renal impairment [Recovering/Resolving]
  - Metabolic acidosis [Not Recovered/Not Resolved]
  - Dyspnoea [Recovering/Resolving]
  - Malaise [Recovering/Resolving]
  - Myalgia [Recovering/Resolving]
  - Rales [Recovering/Resolving]
  - Pneumococcal infection [Unknown]
  - Nausea [Recovering/Resolving]
  - Hypoxia [Recovered/Resolved]
  - COVID-19 [Recovered/Resolved]
  - Tubulointerstitial nephritis [Not Recovered/Not Resolved]
  - Transaminases increased [Recovered/Resolved]
  - Nasal congestion [Recovering/Resolving]
  - Interstitial lung disease [Recovered/Resolved]
  - Acute respiratory distress syndrome [Recovering/Resolving]
  - Rhabdomyolysis [Recovered/Resolved]
  - Toxicity to various agents [Recovered/Resolved]
  - Off label use [Recovering/Resolving]
  - Vomiting [Recovering/Resolving]
  - Metabolic acidosis [Recovering/Resolving]
  - Acute kidney injury [Recovering/Resolving]
  - COVID-19 pneumonia [Recovering/Resolving]
  - Rhinorrhoea [Recovering/Resolving]
  - Lung consolidation [Recovering/Resolving]
  - Renal failure [Recovering/Resolving]
  - Acute pulmonary oedema [Recovered/Resolved]
  - Headache [Recovering/Resolving]
  - Respiratory failure [Recovered/Resolved]
  - Drug interaction [Recovering/Resolving]
  - Hypoxia [Recovering/Resolving]
  - Tachypnoea [Recovering/Resolving]
  - Pyrexia [Recovering/Resolving]
  - Lymphopenia [Recovering/Resolving]

NARRATIVE: CASE EVENT DATE: 202002
